FAERS Safety Report 6690060-X (Version None)
Quarter: 2010Q2

REPORT INFORMATION
  Report Type: 
  Country: None (occurrence: None)
  Receive Date: 20100421
  Receipt Date: 20100413
  Transmission Date: 20101027
  Serious: Yes (Hospitalization)
  Sender: FDA-Public Use
  Company Number: PHHY2010IT23117

PATIENT
  Sex: Female

DRUGS (4)
  1. VOLTAREN [Suspect]
     Indication: BACK PAIN
     Dosage: 1 DF, ONCE/SINGLE
     Route: 030
     Dates: start: 20100106, end: 20100106
  2. MUSCORIL [Suspect]
     Indication: BACK PAIN
     Dosage: 1 DF, ONCE/SINGLE
     Route: 030
     Dates: start: 20100106, end: 20100106
  3. LOBIVON [Concomitant]
     Dosage: 5 MG, UNK
     Route: 048
  4. LEVOTHYROXINE SODIUM [Concomitant]
     Dosage: UNK
     Route: 048

REACTIONS (3)
  - BRONCHOSPASM [None]
  - DYSPHAGIA [None]
  - DYSPNOEA [None]
